FAERS Safety Report 21554493 (Version 1)
Quarter: 2022Q4

REPORT INFORMATION
  Report Type: Spontaneous
  Country: CA (occurrence: CA)
  Receive Date: 20221104
  Receipt Date: 20221104
  Transmission Date: 20230113
  Serious: Yes (Disabling)
  Sender: FDA-Public Use
  Company Number: CA-SA-SAC20221103001170

PATIENT
  Age: 62 Year
  Sex: Male

DRUGS (13)
  1. PRALUENT [Suspect]
     Active Substance: ALIROCUMAB
     Indication: Arteriosclerosis
     Dosage: 150 MG; QOW
     Route: 058
  2. ASPIRIN [Concomitant]
     Active Substance: ASPIRIN
     Dosage: UNK
  3. GABAPENTIN [Concomitant]
     Active Substance: GABAPENTIN
     Dosage: UNK
  4. LANSOPRAZOLE [Concomitant]
     Active Substance: LANSOPRAZOLE
     Dosage: UNK
  5. LEVETIRACETAM [Concomitant]
     Active Substance: LEVETIRACETAM
     Dosage: UNK
  6. LEVOTHYROXINE [Concomitant]
     Active Substance: LEVOTHYROXINE
     Dosage: UNK
  7. METOPROLOL [Concomitant]
     Active Substance: METOPROLOL
     Dosage: UNK
  8. PERINDOPRIL [Concomitant]
     Active Substance: PERINDOPRIL
     Dosage: UNK
  9. RISEDRONATE SODIUM [Concomitant]
     Active Substance: RISEDRONATE SODIUM
     Dosage: UNK
  10. SERTRALINE [Concomitant]
     Active Substance: SERTRALINE HYDROCHLORIDE
     Dosage: UNK
  11. SYMBICORT [Concomitant]
     Active Substance: BUDESONIDE\FORMOTEROL FUMARATE DIHYDRATE
     Dosage: UNK
  12. VITAMIN D3 [Concomitant]
     Active Substance: CHOLECALCIFEROL
     Dosage: UNK
  13. WARFARIN [Concomitant]
     Active Substance: WARFARIN
     Dosage: UNK

REACTIONS (2)
  - Diarrhoea [Recovered/Resolved]
  - Vomiting [Recovered/Resolved]
